FAERS Safety Report 7782166-9 (Version None)
Quarter: 2011Q3

REPORT INFORMATION
  Report Type: 
  Country: None (occurrence: None)
  Receive Date: 20110927
  Receipt Date: 20110915
  Transmission Date: 20111222
  Serious: No
  Sender: FDA-Public Use
  Company Number: US-B.I. PHARMACEUTICALS,INC./RIDGEFIELD-2011-BP-22391BP

PATIENT
  Age: 72 Year
  Sex: Female

DRUGS (5)
  1. CELEXA [Concomitant]
     Indication: ANXIETY
     Dosage: 40 MG
     Route: 048
  2. CLONAZEPAM [Concomitant]
     Indication: ANXIETY
     Route: 048
  3. AMITRIPTYLINE HCL [Concomitant]
     Indication: ANXIETY
     Dosage: 50 MG
     Route: 048
  4. ZANTAC 150 [Suspect]
     Indication: DYSPEPSIA
     Dosage: 300 MG
     Route: 048
     Dates: start: 19950101
  5. DILTIAZEM HCL [Concomitant]
     Indication: HYPERTENSION
     Dosage: 120 MG
     Route: 048

REACTIONS (1)
  - DYSPEPSIA [None]
